FAERS Safety Report 5399103-7 (Version None)
Quarter: 2007Q3

REPORT INFORMATION
  Report Type: 
  Country: None (occurrence: None)
  Receive Date: 20070727
  Receipt Date: 20070309
  Transmission Date: 20080115
  Serious: No
  Sender: FDA-Public Use
  Company Number: A0642599A

PATIENT
  Age: 51 Year
  Sex: Female

DRUGS (6)
  1. LOTRONEX [Suspect]
     Indication: IRRITABLE BOWEL SYNDROME
     Dosage: 1MG PER DAY
     Route: 048
     Dates: start: 20060301
  2. SYNTHROID [Concomitant]
  3. ANTIVERT [Concomitant]
  4. SERAX [Concomitant]
  5. MAXZIDE [Concomitant]
  6. NADOLOL [Concomitant]

REACTIONS (2)
  - DIARRHOEA [None]
  - DRUG INEFFECTIVE [None]
